FAERS Safety Report 22391457 (Version 4)
Quarter: 2024Q4

REPORT INFORMATION
  Report Type: Spontaneous
  Country: US (occurrence: US)
  Receive Date: 20230601
  Receipt Date: 20241127
  Transmission Date: 20250115
  Serious: No
  Sender: SANOFI AVENTIS
  Company Number: US-SA-SAC20230531000708

PATIENT
  Age: 53 Year
  Sex: Male
  Weight: 75 kg

DRUGS (3)
  1. DUPIXENT [Suspect]
     Active Substance: DUPILUMAB
     Indication: Dermatitis atopic
     Dosage: 300 MG, Q4W
     Route: 058
  2. DUPIXENT [Suspect]
     Active Substance: DUPILUMAB
     Indication: Eosinophilia
     Dosage: 300 MG, QOW
     Route: 058
  3. BROMELAINS [Concomitant]
     Active Substance: BROMELAINS
     Dosage: 500 UNK

REACTIONS (10)
  - Stress [Not Recovered/Not Resolved]
  - Wheezing [Unknown]
  - Cough [Unknown]
  - Erythema [Unknown]
  - Eczema [Unknown]
  - Dermatitis atopic [Not Recovered/Not Resolved]
  - Arthralgia [Unknown]
  - Drug hypersensitivity [Unknown]
  - Inappropriate schedule of product administration [Unknown]
  - Product use in unapproved indication [Unknown]
